FAERS Safety Report 5031539-6 (Version None)
Quarter: 2006Q2

REPORT INFORMATION
  Report Type: 
  Country: None (occurrence: None)
  Receive Date: 20060616
  Receipt Date: 20060530
  Transmission Date: 20061013
  Serious: Yes (Hospitalization)
  Sender: FDA-Public Use
  Company Number: US200603000413

PATIENT
  Age: 62 Year
  Sex: Male
  Weight: 124.7 kg

DRUGS (12)
  1. ZYPREXA [Suspect]
     Dosage: SEE IMAGE
     Dates: start: 19970716, end: 19980901
  2. ZYPREXA [Suspect]
     Dosage: SEE IMAGE
     Dates: start: 19980901, end: 19981001
  3. ZYPREXA [Suspect]
     Dosage: SEE IMAGE
     Dates: start: 19981001, end: 20050101
  4. ZYPREXA [Suspect]
     Dosage: SEE IMAGE
     Dates: start: 20050201, end: 20050801
  5. TRILAFON [Concomitant]
  6. NORTRIPTYLINE HCL [Concomitant]
  7. METOPROLOL SUCCINATE [Concomitant]
  8. FUROSEMIDE [Concomitant]
  9. PAXIL [Concomitant]
  10. EFFEXOR [Concomitant]
  11. TRAZODONE HCL [Concomitant]
  12. METFORMIN [Concomitant]

REACTIONS (4)
  - DIABETES MELLITUS INSULIN-DEPENDENT [None]
  - HYPERCHOLESTEROLAEMIA [None]
  - MYOCARDIAL INFARCTION [None]
  - WEIGHT INCREASED [None]
